FAERS Safety Report 14801022 (Version 1)
Quarter: 2018Q2

REPORT INFORMATION
  Report Type: Spontaneous
  Country: US (occurrence: US)
  Receive Date: 20180424
  Receipt Date: 20180424
  Transmission Date: 20180711
  Serious: No
  Sender: FDA-Public Use
  Company Number: US-BAYER-2018-073421

PATIENT
  Age: 30 Year
  Sex: Female

DRUGS (2)
  1. DEXAMETHASONE. [Suspect]
     Active Substance: DEXAMETHASONE
     Dosage: UNK
  2. GADOPENTETATE DIMEGLUMINE. [Suspect]
     Active Substance: GADOPENTETATE DIMEGLUMINE
     Dosage: UNK UNK, ONCE

REACTIONS (1)
  - Rash [None]
